FAERS Safety Report 6144793-4 (Version None)
Quarter: 2009Q2

REPORT INFORMATION
  Report Type: 
  Country: None (occurrence: None)
  Receive Date: 20090402
  Receipt Date: 20090105
  Transmission Date: 20091009
  Serious: No
  Sender: FDA-Public Use
  Company Number: 1000004661

PATIENT
  Age: 84 Year
  Sex: Male

DRUGS (10)
  1. BYSTOLIC [Suspect]
     Indication: HYPERTENSION
     Dosage: 5 MG (5 MG, 1 IN 1 D), ORAL; 10 MG (10 MG, 1 IN 1 D), ORAL
     Route: 048
     Dates: start: 20081122, end: 20081214
  2. BYSTOLIC [Suspect]
     Indication: HYPERTENSION
     Dosage: 5 MG (5 MG, 1 IN 1 D), ORAL; 10 MG (10 MG, 1 IN 1 D), ORAL
     Route: 048
     Dates: start: 20081214
  3. WARFARIN SODIUM [Concomitant]
  4. CALCIUM (CALCIUM) (CALCIUM) [Concomitant]
  5. VITAMIN B  CORP [Concomitant]
  6. VITAMIN B6 (PYRIDOXINE HYDROCHLORIDE) (PYRIDOXINE HYDROCHLORIDE) [Concomitant]
  7. VITAMIN E [Concomitant]
  8. VITAMINS [Concomitant]
  9. SAW PALMETTO [Concomitant]
  10. ASCORBIC ACID [Concomitant]

REACTIONS (2)
  - AMNESIA [None]
  - BALANCE DISORDER [None]
